FAERS Safety Report 5293258-0 (Version None)
Quarter: 2007Q1

REPORT INFORMATION
  Report Type: 
  Country: None (occurrence: None)
  Receive Date: 20070116
  Receipt Date: 20060418
  Transmission Date: 20070707
  Serious: Yes (Hospitalization, Other)
  Sender: FDA-Public Use
  Company Number: HQWYE925621APR06

PATIENT
  Age: 64 Year
  Sex: Female

DRUGS (7)
  1. PREMPRO [Suspect]
  2. CYCRIN [Suspect]
  3. MENEST [Suspect]
  4. PREMARIN [Suspect]
  5. .. [Concomitant]
  6. PROMETRIUM [Suspect]
  7. PROVERA [Suspect]

REACTIONS (1)
  - BREAST CANCER [None]
